FAERS Safety Report 6795154-6 (Version None)
Quarter: 2010Q2

REPORT INFORMATION
  Report Type: 
  Country: None (occurrence: None)
  Receive Date: 20100625
  Receipt Date: 20100625
  Transmission Date: 20101027
  Serious: Yes (Life-Threatening, Hospitalization, Other)
  Sender: FDA-Public Use
  Company Number: PHHO2009ES13503

PATIENT
  Sex: Female
  Weight: 70 kg

DRUGS (10)
  1. PLACEBO COMP-PLA+ [Suspect]
     Indication: PANCREATIC NEUROENDOCRINE TUMOUR
     Dosage: PLACEBO
     Route: 048
     Dates: start: 20090319, end: 20090920
  2. RAD001C [Suspect]
     Indication: PANCREATIC NEUROENDOCRINE TUMOUR
     Dosage: UNK
     Dates: start: 20090921
  3. DIGOXIN [Suspect]
     Indication: CARDIAC FAILURE
     Dosage: UNK
     Dates: start: 20060301, end: 20091013
  4. TRANGOREX [Suspect]
     Indication: CARDIAC FAILURE
     Dosage: UNK
     Dates: start: 20060301, end: 20091013
  5. DILTIAZEM [Suspect]
     Indication: CARDIAC FAILURE
     Dosage: UNK
     Dates: start: 20060301, end: 20091013
  6. SEGURIL [Concomitant]
  7. ALDACTONE [Concomitant]
  8. ADIRO [Concomitant]
  9. MST [Concomitant]
  10. LORAZEPAM [Concomitant]

REACTIONS (13)
  - BRADYCARDIA [None]
  - CARDIAC FAILURE [None]
  - CARDIAC FAILURE CONGESTIVE [None]
  - CARDIO-RESPIRATORY ARREST [None]
  - CARDIOACTIVE DRUG LEVEL INCREASED [None]
  - DYSPNOEA [None]
  - LEFT VENTRICULAR DYSFUNCTION [None]
  - ORTHOPNOEA [None]
  - PNEUMONIA [None]
  - PULMONARY OEDEMA [None]
  - RENAL IMPAIRMENT [None]
  - STAPHYLOCOCCAL INFECTION [None]
  - THERAPEUTIC AGENT TOXICITY [None]
